FAERS Safety Report 13954927 (Version 1)
Quarter: 2017Q3

REPORT INFORMATION
  Report Type: Spontaneous
  Country: US (occurrence: US)
  Receive Date: 20170911
  Receipt Date: 20170911
  Transmission Date: 20171128
  Serious: Yes (Disabling)
  Sender: FDA-Public Use
  Company Number: None

PATIENT
  Age: 65 Year
  Sex: Male
  Weight: 74.25 kg

DRUGS (9)
  1. CIPROFLOXACIN 500 MG TABLETS, MFG. PACK - SUBSTITUTED FOR CIPRO 500 [Suspect]
     Active Substance: CIPROFLOXACIN HYDROCHLORIDE
     Indication: URINARY TRACT INFECTION
     Dosage: ?          QUANTITY:1 TABLET(S);?
     Route: 048
     Dates: start: 20170901, end: 20170908
  2. COQ10 [Concomitant]
     Active Substance: UBIDECARENONE
  3. ZINC. [Concomitant]
     Active Substance: ZINC
  4. VITAMIN D3 [Concomitant]
     Active Substance: CHOLECALCIFEROL
  5. CALCIUM MAGNESIUM SUPPLEMENT [Concomitant]
     Active Substance: CALCIUM\MAGNESIUM
  6. VITAMIN E [Concomitant]
     Active Substance: .ALPHA.-TOCOPHEROL
  7. VITAMIN K [Concomitant]
     Active Substance: PHYTONADIONE
  8. AYURVEDIC HERBAL [Concomitant]
  9. MULTI-VITAMIN [Concomitant]
     Active Substance: .ALPHA.-TOCOPHEROL ACETATE, DL-\ASCORBIC ACID\CYANOCOBALAMIN\FLUORIDE ION\FOLIC ACID\NIACIN\PYRIDOXINE\RIBOFLAVIN\THIAMINE\VITAMIN A\VITAMIN D

REACTIONS (7)
  - Dizziness [None]
  - Muscular weakness [None]
  - Burning sensation [None]
  - Paraesthesia [None]
  - Decreased appetite [None]
  - Asthenia [None]
  - Myalgia [None]

NARRATIVE: CASE EVENT DATE: 20170908
